FAERS Safety Report 17941618 (Version 1)
Quarter: 2020Q2

REPORT INFORMATION
  Report Type: Spontaneous
  Country: US (occurrence: US)
  Receive Date: 20200624
  Receipt Date: 20200624
  Transmission Date: 20200714
  Serious: Yes (Other)
  Sender: FDA-Public Use
  Company Number: None

PATIENT
  Age: 49 Year
  Sex: Female
  Weight: 138.15 kg

DRUGS (10)
  1. IBRANCE [Suspect]
     Active Substance: PALBOCICLIB
     Indication: BREAST CANCER FEMALE
     Route: 048
     Dates: start: 20200508
  2. LOSARTAN. [Concomitant]
     Active Substance: LOSARTAN
  3. FASLODEX [Concomitant]
     Active Substance: FULVESTRANT
  4. DUEXIS [Concomitant]
     Active Substance: FAMOTIDINE\IBUPROFEN
  5. ATORVASTATIN [Concomitant]
     Active Substance: ATORVASTATIN
  6. METFORMIN [Concomitant]
     Active Substance: METFORMIN HYDROCHLORIDE
  7. FISH OIL [Concomitant]
     Active Substance: FISH OIL
  8. XARELTO [Concomitant]
     Active Substance: RIVAROXABAN
  9. ZOLADEX [Concomitant]
     Active Substance: GOSERELIN ACETATE
  10. XGEVA [Concomitant]
     Active Substance: DENOSUMAB

REACTIONS (1)
  - Full blood count decreased [None]

NARRATIVE: CASE EVENT DATE: 20200624
